FAERS Safety Report 25136389 (Version 1)
Quarter: 2025Q1

REPORT INFORMATION
  Report Type: Other
  Country: ES (occurrence: None)
  Receive Date: 20250328
  Receipt Date: 20250328
  Transmission Date: 20250409
  Serious: Yes (Life-Threatening, Hospitalization)
  Sender: INCYTE
  Company Number: None

PATIENT
  Age: 77 Year

DRUGS (4)
  1. RUXOLITINIB [Suspect]
     Active Substance: RUXOLITINIB
     Indication: Myelodysplastic syndrome
     Dosage: 15 MG, Q12H (DEL 16/12/2024 AL 05/03/2025 )
  2. RUXOLITINIB [Suspect]
     Active Substance: RUXOLITINIB
     Dosage: 10 MG, Q12H ( DESDE EL 06/03 AL 09/03/2025 )
  3. RUXOLITINIB [Suspect]
     Active Substance: RUXOLITINIB
     Dosage: 5 MG, Q12H (DESDE 10/03/2025 AL 12/03/2025 )
  4. RUXOLITINIB [Suspect]
     Active Substance: RUXOLITINIB
     Dosage: 5 MG, QD (D?A AL ALTA)

REACTIONS (3)
  - Agranulocytosis [Recovered/Resolved]
  - COVID-19 [Recovered/Resolved]
  - Pancytopenia [Recovering/Resolving]
